FAERS Safety Report 7513031-X (Version None)
Quarter: 2011Q2

REPORT INFORMATION
  Report Type: 
  Country: None (occurrence: None)
  Receive Date: 20110531
  Receipt Date: 20110525
  Transmission Date: 20111010
  Serious: Yes (Death, Other)
  Sender: FDA-Public Use
  Company Number: CA-ABBOTT-11P-028-0720097-00

PATIENT
  Sex: Male
  Weight: 66 kg

DRUGS (6)
  1. HUMIRA [Suspect]
     Route: 058
     Dates: start: 20101001
  2. IMURAN [Concomitant]
     Indication: PRODUCT USED FOR UNKNOWN INDICATION
     Dosage: 150 DAILY
  3. PREDNISONE [Concomitant]
     Indication: PRODUCT USED FOR UNKNOWN INDICATION
  4. ARANESP [Concomitant]
     Indication: PRODUCT USED FOR UNKNOWN INDICATION
  5. HUMIRA [Suspect]
     Indication: CROHN'S DISEASE
     Dates: start: 20071001, end: 20080601
  6. HUMIRA [Suspect]
     Dates: start: 20091101, end: 20101001

REACTIONS (4)
  - SALIVARY GLAND CANCER [None]
  - ILEITIS [None]
  - SALIVARY GLAND NEOPLASM [None]
  - NEOPLASM MALIGNANT [None]
